FAERS Safety Report 9887013 (Version 2)
Quarter: 2014Q1

REPORT INFORMATION
  Report Type: Spontaneous
  Country: US (occurrence: US)
  Receive Date: 20140211
  Receipt Date: 20140306
  Transmission Date: 20141002
  Serious: Yes (Hospitalization)
  Sender: FDA-Public Use
  Company Number: US-BIOGENIDEC-2014BI009969

PATIENT
  Age: 70 Year
  Sex: Female

DRUGS (9)
  1. TYSABRI [Suspect]
     Indication: MULTIPLE SCLEROSIS
     Route: 042
     Dates: start: 20070627
  2. BACLOFEN [Concomitant]
  3. DETROL [Concomitant]
  4. DURAGESIC [Concomitant]
  5. LEVSIN [Concomitant]
  6. NEURONTIN [Concomitant]
  7. PERCOCET [Concomitant]
  8. PROVIGIL [Concomitant]
  9. VALIUM [Concomitant]

REACTIONS (4)
  - Pneumonia [Recovered/Resolved]
  - Streptococcal sepsis [Unknown]
  - Retroperitoneal lymphadenopathy [Unknown]
  - Lymph node abscess [Unknown]
